FAERS Safety Report 23776161 (Version 1)
Quarter: 2024Q2

REPORT INFORMATION
  Report Type: Spontaneous
  Country: US (occurrence: US)
  Receive Date: 20240424
  Receipt Date: 20240424
  Transmission Date: 20240716
  Serious: Yes (Other)
  Sender: FDA-Public Use
  Company Number: US-PROCTER_AND_GAMBLE-PH24003128

PATIENT

DRUGS (1)
  1. DAYQUIL SEVERE PLUS VICKS VAPOCOOL COLD AND FLU [Suspect]
     Active Substance: ACETAMINOPHEN\DEXTROMETHORPHAN HYDROBROMIDE\GUAIFENESIN\PHENYLEPHRINE HYDROCHLORIDE
     Dosage: 2 DOSAGE FORM; TOOK ONE, THEN TRIED THE OTHER ONE
     Route: 048

REACTIONS (2)
  - Choking [Unknown]
  - Dyspnoea [Unknown]
